FAERS Safety Report 6848359-X (Version None)
Quarter: 2010Q3

REPORT INFORMATION
  Report Type: 
  Country: None (occurrence: None)
  Receive Date: 20100716
  Receipt Date: 20100712
  Transmission Date: 20110219
  Serious: Yes (Death)
  Sender: FDA-Public Use
  Company Number: GB-ROCHE-714488

PATIENT
  Sex: Female

DRUGS (5)
  1. BEVACIZUMAB [Suspect]
     Dosage: FREQUENCY: EVERY 2 WEEKS
     Route: 042
     Dates: start: 20100609
  2. INTERFERON ALFA [Suspect]
     Dosage: DOSE 9 MU, FREQUENCY: MONDAY/WEDNESDAY/ FRIDAY
     Route: 058
     Dates: start: 20100609
  3. SPIRONOLACTONE [Concomitant]
     Indication: HEPATIC CIRRHOSIS
  4. FURSEMIDE [Concomitant]
     Indication: HEPATIC CIRRHOSIS
  5. ACETAMINOPHEN [Concomitant]

REACTIONS (1)
  - DEATH [None]
